FAERS Safety Report 9119359 (Version 1)
Quarter: 2013Q1

REPORT INFORMATION
  Report Type: Spontaneous
  Country: GB (occurrence: GB)
  Receive Date: 20130207
  Receipt Date: 20130207
  Transmission Date: 20140127
  Serious: Yes (Other)
  Sender: FDA-Public Use
  Company Number: GB-BAXTER-2013BAX002694

PATIENT
  Sex: Male

DRUGS (3)
  1. EXTRANEAL (ICODEXTRIN 7.5%) SOLUTION FOR PERITONEAL DIALYSIS [Suspect]
     Indication: PERITONEAL DIALYSIS
     Route: 033
  2. DIANEAL [Suspect]
     Indication: PERITONEAL DIALYSIS
     Route: 033
  3. DEXTROSE\LIDOCAINE [Suspect]
     Indication: HYPERTENSION
     Route: 065

REACTIONS (1)
  - Peritoneal cloudy effluent [Recovered/Resolved]
